FAERS Safety Report 9066893 (Version 2)
Quarter: 2013Q1

REPORT INFORMATION
  Report Type: Spontaneous
  Country: US (occurrence: US)
  Receive Date: 20130214
  Receipt Date: 20130326
  Transmission Date: 20140127
  Serious: No
  Sender: FDA-Public Use
  Company Number: US-PFIZER INC-2013058173

PATIENT
  Age: 44 Year
  Sex: Female
  Weight: 93.42 kg

DRUGS (7)
  1. LYRICA [Suspect]
     Indication: FIBROMYALGIA
     Dosage: 100 MG, 4X/DAY
     Dates: start: 20110826
  2. LYRICA [Suspect]
     Indication: SYSTEMIC LUPUS ERYTHEMATOSUS
  3. LYRICA [Suspect]
     Indication: OSTEOARTHRITIS
  4. LYRICA [Suspect]
     Indication: ARTHRITIS
  5. CYMBALTA [Concomitant]
     Indication: SYSTEMIC LUPUS ERYTHEMATOSUS
     Dosage: 60 MG, 1X/DAY
  6. LORTAB [Concomitant]
     Indication: SYSTEMIC LUPUS ERYTHEMATOSUS
     Dosage: [HYDROCODONE BITARTRATE 10 MG] /[ACETAMINOPHEN 500MG], AS NEEDED (EVERY 4-6 HOURS AS NEEDED)
  7. LORTAB [Concomitant]
     Indication: OSTEOARTHRITIS

REACTIONS (2)
  - Influenza [Not Recovered/Not Resolved]
  - Off label use [Unknown]
